FAERS Safety Report 25263104 (Version 1)
Quarter: 2025Q2

REPORT INFORMATION
  Report Type: Spontaneous
  Country: US (occurrence: None)
  Receive Date: 20250501
  Receipt Date: 20250501
  Transmission Date: 20250716
  Serious: No
  Sender: FDA-CTU
  Company Number: None

PATIENT
  Age: 40 Year
  Sex: Male
  Weight: 136 kg

DRUGS (2)
  1. SILDENAFIL CITRATE [Suspect]
     Active Substance: SILDENAFIL CITRATE
     Indication: Erectile dysfunction
     Route: 048
     Dates: start: 20240625
  2. SILDENAFIL CITRATE [Suspect]
     Active Substance: SILDENAFIL CITRATE
     Route: 048
     Dates: start: 20240625

REACTIONS (1)
  - Flushing [None]

NARRATIVE: CASE EVENT DATE: 20240801
